FAERS Safety Report 4757065-7 (Version None)
Quarter: 2005Q3

REPORT INFORMATION
  Report Type: 
  Country: None (occurrence: None)
  Receive Date: 20050829
  Receipt Date: 20050829
  Transmission Date: 20060218
  Serious: Yes (Other)
  Sender: FDA-Public Use
  Company Number: None

PATIENT
  Age: 75 Year
  Sex: Male
  Weight: 79.8331 kg

DRUGS (1)
  1. CARDIOLITE [Suspect]
     Indication: CARDIAC STRESS TEST
     Dosage: 10.14 MLI IV
     Route: 042

REACTIONS (1)
  - RASH [None]
